FAERS Safety Report 10189889 (Version 4)
Quarter: 2014Q2

REPORT INFORMATION
  Report Type: Spontaneous
  Country: US (occurrence: US)
  Receive Date: 20140522
  Receipt Date: 20140523
  Transmission Date: 20141212
  Serious: No
  Sender: FDA-Public Use
  Company Number: US-ASTRAZENECA-2013SE89970

PATIENT
  Sex: Female

DRUGS (1)
  1. PULMICORT FLEXHALER [Suspect]
     Dosage: 180 MCG 2 PUFFS TWO TIMES A DAY
     Route: 055
     Dates: start: 20131208, end: 20131208

REACTIONS (4)
  - Dyspnoea [Not Recovered/Not Resolved]
  - Asthma [Unknown]
  - Fear of disease [Unknown]
  - Circumstance or information capable of leading to medication error [Unknown]
